FAERS Safety Report 13259887 (Version 2)
Quarter: 2017Q1

REPORT INFORMATION
  Report Type: Spontaneous
  Country: FR (occurrence: FR)
  Receive Date: 20170222
  Receipt Date: 20170331
  Transmission Date: 20170428
  Serious: Yes (Life-Threatening)
  Sender: FDA-Public Use
  Company Number: FR-PFIZER INC-2017075922

PATIENT
  Age: 67 Year
  Sex: Female

DRUGS (12)
  1. PERJETA [Suspect]
     Active Substance: PERTUZUMAB
     Dosage: 420 MG, CYCLIC
     Route: 042
     Dates: start: 20170207, end: 20170207
  2. TAXOTERE [Concomitant]
     Active Substance: DOCETAXEL
     Indication: BREAST CANCER METASTATIC
     Dosage: 1ST CYCLE
     Dates: start: 20161212, end: 20161212
  3. POLARAMINE [Concomitant]
     Active Substance: DEXCHLORPHENIRAMINE MALEATE
     Dosage: UNK
     Dates: start: 20170207
  4. HERCEPTIN [Suspect]
     Active Substance: TRASTUZUMAB
     Dosage: 6 MG/KG, CYCLIC
     Route: 042
     Dates: start: 20170207, end: 20170207
  5. PERJETA [Suspect]
     Active Substance: PERTUZUMAB
     Indication: BREAST CANCER METASTATIC
     Dosage: 1SR CYCLE
     Dates: start: 20161212, end: 20161212
  6. TAXOTERE [Concomitant]
     Active Substance: DOCETAXEL
     Dosage: 2ND CYCLE
     Dates: start: 20170102, end: 20170102
  7. HERCEPTIN [Suspect]
     Active Substance: TRASTUZUMAB
     Indication: BREAST CANCER METASTATIC
     Dosage: UNK
     Dates: start: 20161212, end: 20161212
  8. PERJETA [Suspect]
     Active Substance: PERTUZUMAB
     Dosage: 2ND CYCLE
     Dates: start: 20170102, end: 20170102
  9. HERCEPTIN [Suspect]
     Active Substance: TRASTUZUMAB
     Dosage: 2ND CYCLE
     Route: 042
     Dates: start: 20170102, end: 20170102
  10. VIAFLO [Concomitant]
     Dosage: 0.9 %
     Dates: start: 20170207
  11. SOLU-MEDROL [Suspect]
     Active Substance: METHYLPREDNISOLONE SODIUM SUCCINATE
     Indication: PREMEDICATION
     Dosage: 40 MG
     Route: 042
     Dates: start: 20170207, end: 20170207
  12. TAXOTERE [Concomitant]
     Active Substance: DOCETAXEL
     Dosage: 3RD CYLE
     Dates: start: 20170207, end: 20170207

REACTIONS (5)
  - Hypertension [Recovered/Resolved]
  - Eyelid oedema [Recovered/Resolved]
  - Cyanosis [Recovered/Resolved]
  - Hypotension [Recovered/Resolved]
  - Rash [Recovered/Resolved]

NARRATIVE: CASE EVENT DATE: 20170207
